FAERS Safety Report 7194364-6 (Version None)
Quarter: 2010Q4

REPORT INFORMATION
  Report Type: 
  Country: None (occurrence: None)
  Receive Date: 20101124
  Receipt Date: 20101019
  Transmission Date: 20110411
  Serious: No
  Sender: FDA-Public Use
  Company Number: 020649

PATIENT
  Sex: Male
  Weight: 77.1 kg

DRUGS (6)
  1. LACOSAMIDE [Suspect]
     Indication: CONVULSION
     Dosage: (START DATE: JULY OR AUGUST 2010.)
     Dates: start: 20100101, end: 20100101
  2. KEPPRA [Suspect]
     Indication: CONVULSION
     Dates: start: 20040101
  3. DILANTIN [Concomitant]
  4. RAMIPRIL [Concomitant]
  5. ZOCOR [Concomitant]
  6. TOPROL-XL [Concomitant]

REACTIONS (2)
  - BLOOD PRESSURE DECREASED [None]
  - VOMITING [None]
